FAERS Safety Report 9795926 (Version 2)
Quarter: 2014Q1

REPORT INFORMATION
  Report Type: Spontaneous
  Country: US (occurrence: US)
  Receive Date: 20140103
  Receipt Date: 20140310
  Transmission Date: 20141002
  Serious: Yes (Hospitalization)
  Sender: FDA-Public Use
  Company Number: US-SA-2014SA000426

PATIENT
  Age: 56 Year
  Sex: Male
  Weight: 92.98 kg

DRUGS (1)
  1. MULTAQ [Suspect]
     Indication: ATRIAL FIBRILLATION
     Route: 048
     Dates: start: 2011, end: 20131215

REACTIONS (3)
  - Transient ischaemic attack [Unknown]
  - VIIth nerve paralysis [Recovering/Resolving]
  - Drug dose omission [Unknown]
